FAERS Safety Report 4534950-2 (Version None)
Quarter: 2004Q4

REPORT INFORMATION
  Report Type: 
  Country: None (occurrence: None)
  Receive Date: 20041222
  Receipt Date: 20040909
  Transmission Date: 20050328
  Serious: No
  Sender: FDA-Public Use
  Company Number: US-BRISTOL-MYERS SQUIBB COMPANY-12698155

PATIENT
  Age: 47 Year
  Sex: Male
  Weight: 82 kg

DRUGS (2)
  1. PRAVACHOL [Suspect]
     Indication: HYPERLIPIDAEMIA
     Route: 048
     Dates: start: 20040701, end: 20040801
  2. GLUCOVANCE [Concomitant]

REACTIONS (1)
  - MOUTH HAEMORRHAGE [None]
